FAERS Safety Report 21945469 (Version 1)
Quarter: 2023Q1

REPORT INFORMATION
  Report Type: Spontaneous
  Country: US (occurrence: None)
  Receive Date: 20230201
  Receipt Date: 20230201
  Transmission Date: 20230418
  Serious: Yes (Hospitalization)
  Sender: FDA-Public Use
  Company Number: None

PATIENT
  Sex: Female

DRUGS (12)
  1. STELARA [Suspect]
     Active Substance: USTEKINUMAB
     Indication: Crohn^s disease
     Dosage: 90 MG/ML SUBCUTANEOUS??INJECT 90 MG UNDERTHE SKIN (SUBCUTANEOUS INJECTION) EVERY 4 WEEKS
     Route: 058
     Dates: start: 20220830
  2. STELARA [Suspect]
     Active Substance: USTEKINUMAB
     Dosage: FREQUENCY : MONTHLY;?
     Route: 058
  3. ALBUTEROL [Concomitant]
     Active Substance: ALBUTEROL
  4. BIOTIN [Concomitant]
     Active Substance: BIOTIN
  5. ESCITALOPRAM [Concomitant]
     Active Substance: ESCITALOPRAM OXALATE
  6. ACETAMINOPHEN\HYDROCODONE [Concomitant]
     Active Substance: ACETAMINOPHEN\HYDROCODONE
  7. LOSARTAN POTASSIUM [Concomitant]
     Active Substance: LOSARTAN POTASSIUM
  8. MULTIVITAMIN [Concomitant]
  9. PROBIOTICS NOS [Concomitant]
     Active Substance: PROBIOTICS NOS
  10. TOPROL XL [Concomitant]
     Active Substance: METOPROLOL SUCCINATE
  11. VITAMIN D [Concomitant]
     Active Substance: VITAMIN D NOS
  12. XANAX XR [Concomitant]
     Active Substance: ALPRAZOLAM

REACTIONS (3)
  - Diarrhoea [None]
  - Abdominal pain [None]
  - Crohn^s disease [None]
